FAERS Safety Report 7147761 (Version 4)
Quarter: 2012Q4

REPORT INFORMATION
  Report Type: Report from Study
  Country: JP (occurrence: JP)
  Receive Date: 20091013
  Receipt Date: 20121031
  Transmission Date: 20130627
  Serious: Yes (Other)
  Sender: FDA-Public Use
  Company Number: JP-JNJFOC-20091001970

PATIENT
  Age: 34 Year
  Sex: Male
  Weight: 52 kg

DRUGS (42)
  1. REMICADE [Suspect]
     Indication: BEHCET^S SYNDROME
     Route: 042
     Dates: start: 20080121
  2. REMICADE [Suspect]
     Indication: BEHCET^S SYNDROME
     Route: 042
     Dates: start: 20070914
  3. REMICADE [Suspect]
     Indication: BEHCET^S SYNDROME
     Route: 042
     Dates: start: 20071119
  4. REMICADE [Suspect]
     Indication: BEHCET^S SYNDROME
     Route: 042
     Dates: start: 20070817
  5. REMICADE [Suspect]
     Indication: BEHCET^S SYNDROME
     Route: 042
     Dates: start: 20080317
  6. REMICADE [Suspect]
     Indication: BEHCET^S SYNDROME
     Route: 042
     Dates: start: 20080513
  7. REMICADE [Suspect]
     Indication: BEHCET^S SYNDROME
     Route: 042
     Dates: start: 20080708
  8. REMICADE [Suspect]
     Indication: BEHCET^S SYNDROME
     Route: 042
     Dates: start: 20070803
  9. REMICADE [Suspect]
     Indication: BEHCET^S SYNDROME
     Route: 042
     Dates: start: 20080902
  10. REMICADE [Suspect]
     Indication: BEHCET^S SYNDROME
     Route: 042
     Dates: start: 20081028
  11. UNSPECIFIED INGREDIENT [Suspect]
     Indication: BEHCET^S SYNDROME
     Route: 048
     Dates: start: 20070703
  12. COLCHICINE [Concomitant]
     Indication: BEHCET^S SYNDROME
     Route: 048
     Dates: start: 20060926
  13. ISONIAZID [Concomitant]
     Indication: ANTIBIOTIC PROPHYLAXIS
     Route: 048
     Dates: start: 20070702, end: 20080512
  14. ISONIAZID [Concomitant]
     Indication: ANTIBIOTIC PROPHYLAXIS
     Route: 048
     Dates: start: 20080513
  15. ANTIHISTAMINES [Concomitant]
     Indication: PROPHYLAXIS
     Dates: start: 20070914, end: 20070914
  16. ANTIHISTAMINES [Concomitant]
     Indication: PROPHYLAXIS
     Dates: start: 20081028, end: 20081028
  17. ANTIHISTAMINES [Concomitant]
     Indication: PROPHYLAXIS
     Dates: start: 20080902, end: 20080902
  18. ANTIHISTAMINES [Concomitant]
     Indication: PROPHYLAXIS
     Dates: start: 20080708, end: 20080708
  19. ANTIHISTAMINES [Concomitant]
     Indication: PROPHYLAXIS
     Dates: start: 20080513, end: 20080513
  20. ANTIHISTAMINES [Concomitant]
     Indication: PROPHYLAXIS
     Dates: start: 20080317, end: 20080317
  21. ANTIHISTAMINES [Concomitant]
     Indication: PROPHYLAXIS
     Dates: start: 20080121, end: 20080121
  22. ANTIHISTAMINES [Concomitant]
     Indication: PROPHYLAXIS
     Dates: start: 20071119, end: 20071119
  23. ANTIHISTAMINES [Concomitant]
     Indication: PROPHYLAXIS
     Dates: start: 20070817, end: 20070817
  24. ANTIHISTAMINES [Concomitant]
     Indication: PROPHYLAXIS
     Dates: start: 20070803, end: 20070803
  25. RINDERON-A [Concomitant]
     Indication: BEHCET^S SYNDROME
     Dates: start: 20080213
  26. AZOPT [Concomitant]
     Indication: BEHCET^S SYNDROME
     Dates: start: 20080326, end: 20080708
  27. ACETAZOLAMIDE [Concomitant]
     Indication: BEHCET^S SYNDROME
     Route: 048
     Dates: start: 20080528, end: 20080723
  28. ASPARTATE POTASSIUM [Concomitant]
     Indication: BEHCET^S SYNDROME
     Route: 048
     Dates: start: 20080528, end: 20080723
  29. TIMOLOL MALEATE [Concomitant]
     Indication: BEHCET^S SYNDROME
     Dates: start: 20080528, end: 20080624
  30. HYPADIL [Concomitant]
     Indication: BEHCET^S SYNDROME
     Dates: start: 20080625, end: 20080708
  31. ATROPINE [Concomitant]
     Indication: BEHCET^S SYNDROME
     Dates: start: 20080724
  32. LOXOPROFEN [Concomitant]
     Indication: PROPHYLAXIS
     Route: 048
     Dates: start: 20070803, end: 20070803
  33. LOXOPROFEN [Concomitant]
     Indication: PROPHYLAXIS
     Route: 048
     Dates: start: 20070817, end: 20070817
  34. LOXOPROFEN [Concomitant]
     Indication: PROPHYLAXIS
     Route: 048
     Dates: start: 20070914, end: 20070914
  35. LOXOPROFEN [Concomitant]
     Indication: PROPHYLAXIS
     Route: 048
     Dates: start: 20071119, end: 20071119
  36. LOXOPROFEN [Concomitant]
     Indication: PROPHYLAXIS
     Route: 048
     Dates: start: 20080121, end: 20080121
  37. LOXOPROFEN [Concomitant]
     Indication: PROPHYLAXIS
     Route: 048
     Dates: start: 20080317, end: 20080317
  38. LOXOPROFEN [Concomitant]
     Indication: PROPHYLAXIS
     Route: 048
     Dates: start: 20080513, end: 20080513
  39. LOXOPROFEN [Concomitant]
     Indication: PROPHYLAXIS
     Route: 048
     Dates: start: 20080708, end: 20080708
  40. LOXOPROFEN [Concomitant]
     Indication: PROPHYLAXIS
     Route: 048
     Dates: start: 20081028, end: 20081028
  41. LOXOPROFEN [Concomitant]
     Indication: PROPHYLAXIS
     Route: 048
     Dates: start: 20080902, end: 20080902
  42. MITOMYCIN [Concomitant]
     Indication: BEHCET^S SYNDROME
     Dates: start: 20080724

REACTIONS (2)
  - Glaucoma [Recovering/Resolving]
  - Upper respiratory tract inflammation [None]
